FAERS Safety Report 19515787 (Version 1)
Quarter: 2021Q3

REPORT INFORMATION
  Report Type: Spontaneous
  Country: US (occurrence: US)
  Receive Date: 20210709
  Receipt Date: 20210709
  Transmission Date: 20211014
  Serious: No
  Sender: FDA-Public Use
  Company Number: US-ASTELLAS-2020US024447

PATIENT
  Sex: Female

DRUGS (4)
  1. MYRBETRIQ [Suspect]
     Active Substance: MIRABEGRON
     Indication: NOCTURIA
     Route: 048
     Dates: start: 20200522, end: 20200529
  2. DETROL LA [Suspect]
     Active Substance: TOLTERODINE TARTRATE
     Indication: NOCTURIA
     Route: 065
     Dates: start: 20200727
  3. MYRBETRIQ [Suspect]
     Active Substance: MIRABEGRON
     Route: 048
     Dates: start: 20200616, end: 20200723
  4. PROLIA [Suspect]
     Active Substance: DENOSUMAB
     Indication: PRODUCT USED FOR UNKNOWN INDICATION
     Dosage: UNK UNK, UNKNOWN FREQ.
     Route: 065
     Dates: start: 20200707

REACTIONS (5)
  - Arthralgia [Recovered/Resolved]
  - Dysphagia [Recovered/Resolved]
  - Chest discomfort [Unknown]
  - Therapeutic product effect incomplete [Unknown]
  - Pharyngeal swelling [Unknown]
